FAERS Safety Report 15198174 (Version 2)
Quarter: 2018Q3

REPORT INFORMATION
  Report Type: Report from Study
  Country: GB (occurrence: DE)
  Receive Date: 20180725
  Receipt Date: 20180802
  Transmission Date: 20181010
  Serious: Yes (Death)
  Sender: FDA-Public Use
  Company Number: GB-MYLANLABS-2018M1053933

PATIENT
  Age: 60 Year
  Sex: Female
  Weight: 40 kg

DRUGS (42)
  1. EUGLUCON [Suspect]
     Active Substance: GLYBURIDE
     Indication: DIABETES MELLITUS
     Dosage: 1 DF, QD
     Route: 048
     Dates: end: 19980818
  2. FRAGMIN P [Suspect]
     Active Substance: DALTEPARIN SODIUM
     Indication: THROMBOSIS PROPHYLAXIS
     Dosage: 1 DF, QD
     Route: 058
     Dates: start: 19980818
  3. ENALAPRIL MALEATE. [Suspect]
     Active Substance: ENALAPRIL MALEATE
     Indication: HYPERTENSION
     Dosage: 10 MG, QD
     Route: 048
     Dates: start: 19980811, end: 19980817
  4. ACETYLSALICYLIC ACID [Suspect]
     Active Substance: ASPIRIN
     Indication: THROMBOSIS PROPHYLAXIS
     Dosage: 100 MG, UNK
     Route: 048
  5. DILATREND [Suspect]
     Active Substance: CARVEDILOL
     Indication: HYPERTENSION
     Dosage: 13 MG, QD
     Route: 048
     Dates: start: 19980811
  6. SOLU?DECORTIN?H [Concomitant]
     Active Substance: PREDNISOLONE SODIUM SUCCINATE
     Indication: ERYTHEMA
     Dosage: 100 MG (DAILY DOSE), , INTRAVENOUS
     Route: 042
     Dates: start: 19980826, end: 19980826
  7. TAGAMET [Concomitant]
     Active Substance: CIMETIDINE
     Indication: PROPHYLAXIS AGAINST GASTROINTESTINAL ULCER
     Dosage: 1 (DAILY DOSE), , INTRAVENOUS
     Route: 042
     Dates: start: 19980826, end: 19980826
  8. IRENAT [Concomitant]
     Active Substance: SODIUM PERCHLORATE
     Indication: HYPERTHYROIDISM
     Dosage: 60 GTT, QD
     Route: 048
     Dates: end: 19980828
  9. PASPERTIN                          /00041902/ [Suspect]
     Active Substance: METOCLOPRAMIDE HYDROCHLORIDE
     Dosage: 20 GTT, UNK
     Route: 048
     Dates: start: 19980814, end: 19980818
  10. KALIUMKLORID [Concomitant]
     Dosage: 6 MMOL, UNK
     Route: 042
     Dates: start: 19980828, end: 19980828
  11. POTASSIUM CHLORIDE. [Concomitant]
     Active Substance: POTASSIUM CHLORIDE
     Indication: BLOOD POTASSIUM DECREASED
     Dosage: 2 DF, QD
     Route: 048
     Dates: start: 19980814, end: 19980814
  12. SORTIS [Concomitant]
     Active Substance: ATORVASTATIN
     Indication: LIPIDS INCREASED
     Dosage: 10 MG, QD
     Route: 048
     Dates: start: 19980826
  13. PARACETAMOL [Concomitant]
     Active Substance: ACETAMINOPHEN
     Indication: ANALGESIC THERAPY
     Dosage: 500 MG (DAILY DOSE), , ORAL
     Route: 048
     Dates: start: 19980826
  14. VANCOMYCIN [Suspect]
     Active Substance: VANCOMYCIN
     Indication: PNEUMONIA
     Route: 042
     Dates: start: 19980821, end: 19980826
  15. AMINOQUINURIDE HYDROCHLORIDE W/INSULIN ZINC S [Concomitant]
     Indication: DIABETES MELLITUS
     Dosage: 8 IU (DAILY DOSE), , SUBCUTANEOUS
     Route: 058
  16. EUGLUCON [Suspect]
     Active Substance: GLYBURIDE
     Dosage: 1 DF, QD
     Route: 048
     Dates: start: 19980820, end: 19980821
  17. XANEF                              /00574902/ [Suspect]
     Active Substance: ENALAPRIL MALEATE
     Indication: HYPERTENSION
     Dosage: 10 MG, QD
     Route: 048
     Dates: start: 19980818
  18. DIGIMERCK [Suspect]
     Active Substance: DIGITOXIN
     Indication: CARDIAC FAILURE
     Dosage: 1 DF, QD
     Route: 048
     Dates: start: 19980812
  19. ISOKET [Suspect]
     Active Substance: ISOSORBIDE DINITRATE
     Indication: HYPERTENSION
     Dosage: 60 MG, QD
     Route: 048
     Dates: start: 19980818
  20. PASPERTIN                          /00041902/ [Suspect]
     Active Substance: METOCLOPRAMIDE HYDROCHLORIDE
     Indication: NAUSEA
     Dosage: 20 GTT, UNK
     Route: 048
  21. KALIUMKLORID [Concomitant]
     Indication: BLOOD POTASSIUM DECREASED
     Dosage: 3 DF, QD
     Route: 048
     Dates: start: 19980818, end: 19980820
  22. ELECTROLYTES NOS [Concomitant]
     Active Substance: ELECTROLYTES NOS
     Indication: FLUID REPLACEMENT
     Dosage: 1000 ML, QD
     Route: 042
     Dates: start: 19980821, end: 19980828
  23. UNAT [Suspect]
     Active Substance: TORSEMIDE
     Indication: CARDIAC FAILURE
     Dosage: 40 MG, QD
     Route: 048
     Dates: start: 19980808
  24. HEPARIN?CALCIUM [Suspect]
     Active Substance: HEPARIN CALCIUM
     Indication: THROMBOSIS PROPHYLAXIS
     Dosage: 15000 IU, QD
     Route: 058
     Dates: start: 19980811, end: 19980818
  25. TAVEGIL                            /00137201/ [Concomitant]
     Active Substance: CLEMASTINE FUMARATE
     Indication: ERYTHEMA
     Dosage: 1 (DAILY DOSE), , INTRAVENOUS
     Route: 042
     Dates: start: 19980826, end: 19980826
  26. PASPERTIN                          /00041902/ [Concomitant]
     Active Substance: METOCLOPRAMIDE HYDROCHLORIDE
     Indication: NAUSEA
     Dosage: 60 GTT (DAILY DOSE), , INTRAVENOUS
     Route: 042
     Dates: start: 19980808, end: 19980826
  27. DEXPANTHENOL. [Concomitant]
     Active Substance: DEXPANTHENOL
     Indication: CIRCULATORY COLLAPSE
     Dosage: 4 (DAILY DOSE), , INTRAVENOUS
     Route: 042
     Dates: start: 19980808, end: 19980808
  28. AMINO ACIDS NOS W/ELECTROLYTES NOS/VITAMINS N [Concomitant]
     Indication: FLUID REPLACEMENT
     Route: 042
     Dates: start: 19980811, end: 19980817
  29. ZOCOR [Concomitant]
     Active Substance: SIMVASTATIN
     Indication: HYPERTENSION
     Dosage: 20 MG, QD
     Route: 048
     Dates: start: 19980803, end: 19980818
  30. GLUCOSE [Concomitant]
     Active Substance: DEXTROSE
     Indication: FLUID REPLACEMENT
     Dosage: 500 ML, QD
     Route: 042
     Dates: start: 19980824, end: 19980824
  31. NOVALGIN (METAMIZOLE SODIUM) [Suspect]
     Active Substance: METAMIZOLE SODIUM
     Indication: PAIN
     Dosage: 20 GTT, QD
     Route: 048
     Dates: start: 19980811, end: 19980811
  32. PASPERTIN                          /00041902/ [Suspect]
     Active Substance: METOCLOPRAMIDE HYDROCHLORIDE
     Dosage: 60 GTT (DAILY DOSE), , ORAL
     Route: 048
     Dates: start: 19980820, end: 19980820
  33. BENZYLPENICILLIN SODIUM [Suspect]
     Active Substance: PENICILLIN G SODIUM
     Indication: PNEUMONIA
     Dosage: 20 MILLION IU, QD
     Route: 042
     Dates: start: 19980821, end: 19980826
  34. LOPIRIN COR [Concomitant]
     Active Substance: CAPTOPRIL
     Indication: HYPERTENSION
     Dosage: 2 DF, QD
     Route: 048
     Dates: end: 19980806
  35. KALINOR?BRAUSETABLETTEN [Concomitant]
     Active Substance: POTASSIUM CARBONATE\POTASSIUM CITRATE
     Indication: BLOOD POTASSIUM DECREASED
     Dosage: 1 DF, QD
     Route: 048
     Dates: start: 19980821, end: 19980821
  36. ZIENAM [Concomitant]
     Active Substance: CILASTATIN SODIUM\IMIPENEM
     Indication: SEPSIS
     Dosage: 1500 MG, QD
     Route: 042
     Dates: start: 19980828
  37. DOPMIN                             /00360701/ [Concomitant]
     Indication: CIRCULATORY COLLAPSE
     Route: 042
     Dates: start: 19980808, end: 19980808
  38. CARBIMAZOL [Concomitant]
     Active Substance: CARBIMAZOLE
     Indication: HYPERTHYROIDISM
     Dosage: 20 MG, QD
     Route: 048
  39. LASIX [Suspect]
     Active Substance: FUROSEMIDE
     Indication: CARDIAC FAILURE
     Dosage: 1 DF, QD
     Route: 048
     Dates: end: 19980406
  40. ANTRA                              /00661201/ [Concomitant]
     Active Substance: OMEPRAZOLE
     Indication: PROPHYLAXIS AGAINST GASTROINTESTINAL ULCER
     Route: 048
     Dates: end: 19980818
  41. KALINOR?BRAUSETABLETTEN [Concomitant]
     Active Substance: POTASSIUM CARBONATE\POTASSIUM CITRATE
     Dosage: 1 DF, QD
     Route: 048
     Dates: start: 19980824, end: 19980825
  42. NOVODIGAL                          /00017701/ [Concomitant]
     Active Substance: DIGOXIN
     Indication: CARDIAC FAILURE
     Dosage: 0.2 MG, QD
     Route: 048
     Dates: end: 19980812

REACTIONS (2)
  - Toxic epidermal necrolysis [Fatal]
  - Circulatory collapse [Fatal]

NARRATIVE: CASE EVENT DATE: 19980826
